FAERS Safety Report 4952679-3 (Version None)
Quarter: 2006Q1

REPORT INFORMATION
  Report Type: 
  Country: None (occurrence: None)
  Receive Date: 20060324
  Receipt Date: 20060315
  Transmission Date: 20060701
  Serious: Yes (Hospitalization)
  Sender: FDA-Public Use
  Company Number: GB-ABBOTT-06P-167-0328262-00

PATIENT
  Sex: Female

DRUGS (1)
  1. EPILIM TABLETS [Suspect]
     Indication: OVERDOSE
     Route: 048

REACTIONS (4)
  - AMNESIA [None]
  - ANOXIC ENCEPHALOPATHY [None]
  - CONVULSION [None]
  - OVERDOSE [None]
